FAERS Safety Report 7936524-X (Version None)
Quarter: 2011Q4

REPORT INFORMATION
  Report Type: 
  Country: None (occurrence: None)
  Receive Date: 20111123
  Receipt Date: 20110829
  Transmission Date: 20120403
  Serious: No
  Sender: FDA-Public Use
  Company Number: US-BAYER-2011-085807

PATIENT
  Age: 66 Year
  Sex: Male
  Weight: 95 kg

DRUGS (7)
  1. ALEVE (CAPLET) [Suspect]
     Indication: ANALGESIC THERAPY
     Dosage: 1.5 DF, BID
     Dates: start: 20110824
  2. ALEVE (CAPLET) [Suspect]
     Indication: ARTHRALGIA
  3. PRAVASTATIN [Concomitant]
  4. LEVOTHYROXINE SODIUM [Concomitant]
  5. CARBAMAZEPINE [Concomitant]
  6. MULTI-VITAMINS [Concomitant]
  7. AVALIDE [Concomitant]

REACTIONS (3)
  - DRY THROAT [None]
  - COUGH [None]
  - ARTHRALGIA [None]
